FAERS Safety Report 5168610-4 (Version None)
Quarter: 2006Q4

REPORT INFORMATION
  Report Type: 
  Country: None (occurrence: None)
  Receive Date: 20061209
  Receipt Date: 20061023
  Transmission Date: 20070319
  Serious: Yes (Hospitalization)
  Sender: FDA-Public Use
  Company Number: US-ABBOTT-06P-163-0347786-00

PATIENT
  Sex: Female
  Weight: 56.75 kg

DRUGS (2)
  1. SYNTHROID [Suspect]
     Indication: HYPOTHYROIDISM
     Route: 048
     Dates: end: 20061117
  2. SERTRALINE HYDROCHLORIDE [Concomitant]
     Indication: DRUG USE FOR UNKNOWN INDICATION
     Route: 048

REACTIONS (4)
  - BLOOD THYROID STIMULATING HORMONE INCREASED [None]
  - DELIRIUM [None]
  - INFECTION [None]
  - URINARY TRACT INFECTION [None]
